FAERS Safety Report 10213461 (Version 2)
Quarter: 2014Q2

REPORT INFORMATION
  Report Type: Spontaneous
  Country: US (occurrence: US)
  Receive Date: 20140603
  Receipt Date: 20140617
  Transmission Date: 20141212
  Serious: No
  Sender: FDA-Public Use
  Company Number: US-SHIRE-US201402598

PATIENT
  Age: 24 Year
  Sex: Male

DRUGS (5)
  1. VYVANSE [Suspect]
     Indication: ATTENTION DEFICIT/HYPERACTIVITY DISORDER
     Dosage: 40 MG, 1X/DAY:QD
     Route: 048
     Dates: start: 20140501, end: 20140515
  2. VYVANSE [Suspect]
     Dosage: 30 MG, UNKNOWN
     Route: 048
     Dates: start: 20130503, end: 20130509
  3. VYVANSE [Suspect]
     Dosage: 20 MG, UNKNOWN
     Route: 048
     Dates: start: 20130510
  4. ADDERALL [Concomitant]
     Indication: PRODUCT USED FOR UNKNOWN INDICATION
     Dosage: 20 MG, 1X/DAY:QD
     Route: 065
     Dates: start: 20140106
  5. MIXED AMPHETAMINE SALTS [Concomitant]
     Indication: PRODUCT USED FOR UNKNOWN INDICATION
     Dosage: 10 MG, 1X/DAY:QD (IN THE AFTERNOON)
     Route: 065
     Dates: start: 20140221

REACTIONS (3)
  - Hot flush [Recovered/Resolved]
  - Increased appetite [Recovered/Resolved]
  - Hyperhidrosis [Recovered/Resolved]
